FAERS Safety Report 14019483 (Version 1)
Quarter: 2017Q3

REPORT INFORMATION
  Report Type: Spontaneous
  Country: ES (occurrence: ES)
  Receive Date: 20170928
  Receipt Date: 20170928
  Transmission Date: 20171128
  Serious: Yes (Other)
  Sender: FDA-Public Use
  Company Number: ES-JNJFOC-20170919217

PATIENT
  Sex: Male

DRUGS (7)
  1. TRABECTEDIN [Suspect]
     Active Substance: TRABECTEDIN
     Indication: LIPOSARCOMA
     Dosage: TOTAL DOSE OF 3 MG 24 HOURS INFUSION
     Route: 042
  2. ZOLPIDEM [Concomitant]
     Active Substance: ZOLPIDEM\ZOLPIDEM TARTRATE
     Route: 048
  3. TELMISARTAN. [Concomitant]
     Active Substance: TELMISARTAN
     Route: 048
  4. BEMIPARIN SODIUM [Concomitant]
     Active Substance: BEMIPARIN SODIUM
     Route: 058
  5. INSULIN LISPRO PROTAMINE SUSPENSION [Concomitant]
     Indication: TYPE 2 DIABETES MELLITUS
     Dosage: 15 UNITS IN THE MORNING, 17 UNITS AT LUNCH, 5 UNITS IN THE EVENING
     Route: 058
  6. LOSARTAN. [Concomitant]
     Active Substance: LOSARTAN
     Route: 048
  7. ESCITALOPRAM [Concomitant]
     Active Substance: ESCITALOPRAM OXALATE
     Route: 048

REACTIONS (5)
  - Off label use [Unknown]
  - Pulmonary embolism [Unknown]
  - Underdose [Unknown]
  - Cellulitis [Unknown]
  - Pancytopenia [Unknown]
